FAERS Safety Report 10049083 (Version 1)
Quarter: 2014Q1

REPORT INFORMATION
  Report Type: Spontaneous
  Country: US (occurrence: US)
  Receive Date: 20140331
  Receipt Date: 20140331
  Transmission Date: 20141002
  Serious: Yes (Hospitalization)
  Sender: FDA-Public Use
  Company Number: US-B.I. PHARMACEUTICALS,INC./RIDGEFIELD-2014-BI-13173BP

PATIENT
  Age: 66 Year
  Sex: Male

DRUGS (10)
  1. PRADAXA [Suspect]
     Indication: ATRIAL FIBRILLATION
     Dosage: 300 MG
     Route: 048
     Dates: start: 2013
  2. DILTIAZEM HCL [Concomitant]
     Dosage: 120 MG
     Route: 048
     Dates: start: 2012
  3. SYNTHROID [Concomitant]
     Indication: HYPOTHYROIDISM
     Dosage: 0.175 MCG
     Route: 048
     Dates: start: 2004
  4. RAMIPRIL [Concomitant]
     Dosage: 10 MG
     Route: 048
     Dates: start: 2010
  5. ASPIRIN [Concomitant]
     Dosage: 81 MG
     Route: 048
     Dates: start: 2004
  6. PRAVASTATIN [Concomitant]
     Indication: BLOOD CHOLESTEROL INCREASED
     Dosage: 80 MG
     Route: 048
     Dates: start: 2010
  7. PRAMIPEXOLE [Concomitant]
     Indication: TREMOR
     Dosage: 0.5 MG
     Route: 048
     Dates: start: 2012
  8. LEXAPRO [Concomitant]
     Indication: DEPRESSION
     Dosage: 20 MG
     Route: 048
     Dates: start: 2011
  9. FLOMAX [Concomitant]
     Indication: PROSTATE CANCER
     Dosage: 0.4 MG
     Route: 048
     Dates: start: 2012
  10. BETHANECHOL [Concomitant]
     Indication: BLADDER DISORDER
     Dosage: 25 MG
     Route: 048
     Dates: start: 2012

REACTIONS (2)
  - Viral infection [Not Recovered/Not Resolved]
  - Diarrhoea [Not Recovered/Not Resolved]
